FAERS Safety Report 13926398 (Version 1)
Quarter: 2017Q3

REPORT INFORMATION
  Report Type: Spontaneous
  Country: US (occurrence: None)
  Receive Date: 20170831
  Receipt Date: 20170831
  Transmission Date: 20171127
  Serious: Yes (Death)
  Sender: FDA-Public Use
  Company Number: None

PATIENT
  Age: 80 Year
  Sex: Male

DRUGS (6)
  1. ASPIRIN. [Concomitant]
     Active Substance: ASPIRIN
  2. PROBIOTIC [Concomitant]
     Active Substance: PROBIOTICS NOS
  3. METOPROLOL. [Concomitant]
     Active Substance: METOPROLOL
  4. AFINITOR [Suspect]
     Active Substance: EVEROLIMUS
     Indication: NEUROENDOCRINE CARCINOMA
     Dosage: 1 TABLET DAILY ORAL
     Route: 048
     Dates: start: 20170713
  5. VITAMIN D3 [Concomitant]
     Active Substance: CHOLECALCIFEROL
  6. BRILINTA [Concomitant]
     Active Substance: TICAGRELOR

REACTIONS (1)
  - Death [None]

NARRATIVE: CASE EVENT DATE: 20170824
